FAERS Safety Report 9703385 (Version 1)
Quarter: 2013Q4

REPORT INFORMATION
  Report Type: Report from Study
  Country: BR (occurrence: BR)
  Receive Date: 20131122
  Receipt Date: 20131122
  Transmission Date: 20140711
  Serious: Yes (Death, Other)
  Sender: FDA-Public Use
  Company Number: PHHY2013BR133578

PATIENT
  Sex: Female
  Weight: 35 kg

DRUGS (6)
  1. ONBREZ [Suspect]
     Indication: EMPHYSEMA
     Dosage: 150 UG, (ONCE IN MORNING AND ONCE AT NIGHT)
     Dates: start: 20131018
  2. ONBREZ [Suspect]
     Indication: OFF LABEL USE
  3. ALENIA [Concomitant]
     Indication: DYSPNOEA
     Dosage: 30 MG, UNK
  4. SPIRIVA [Concomitant]
     Indication: DYSPNOEA
     Dosage: UNK UKN, UNK
     Dates: start: 20131002
  5. CAPTOPRIL [Concomitant]
     Indication: HYPERTENSION
     Dosage: 20 MG, UNK
  6. DILTIAZEM [Concomitant]
     Indication: CARDIAC DISORDER
     Dosage: 30 MG, UNK
     Dates: start: 20131002

REACTIONS (2)
  - Respiratory failure [Fatal]
  - Inappropriate schedule of drug administration [Unknown]
